FAERS Safety Report 7362046-3 (Version None)
Quarter: 2011Q1

REPORT INFORMATION
  Report Type: 
  Country: None (occurrence: None)
  Receive Date: 20110318
  Receipt Date: 20110308
  Transmission Date: 20110831
  Serious: Yes (Hospitalization)
  Sender: FDA-Public Use
  Company Number: US-JNJFOC-20080106056

PATIENT
  Sex: Male
  Weight: 35.5 kg

DRUGS (5)
  1. CIPRO [Concomitant]
     Route: 065
  2. MERCAPTOPURINE [Concomitant]
     Route: 065
  3. MESALAMINE [Concomitant]
     Route: 048
  4. INFLIXIMAB [Suspect]
     Dosage: TOTAL 3 DOSES
     Route: 042
  5. INFLIXIMAB [Suspect]
     Indication: INFLAMMATORY BOWEL DISEASE
     Dosage: INITIAL INFUSION
     Route: 042

REACTIONS (3)
  - CROHN'S DISEASE [None]
  - ILEAL STENOSIS [None]
  - MALNUTRITION [None]
